FAERS Safety Report 10456163 (Version 1)
Quarter: 2014Q3

REPORT INFORMATION
  Report Type: Spontaneous
  Country: US (occurrence: None)
  Receive Date: 20140829
  Receipt Date: 20140829
  Transmission Date: 20150326
  Serious: No
  Sender: FDA-Public Use
  Company Number: JHP201300585

PATIENT
  Sex: Female

DRUGS (1)
  1. DELESTROGEN [Suspect]
     Active Substance: ESTRADIOL VALERATE

REACTIONS (1)
  - Haemorrhage [None]
